FAERS Safety Report 9892010 (Version 2)
Quarter: 2014Q1

REPORT INFORMATION
  Report Type: Report from Study
  Country: US (occurrence: US)
  Receive Date: 20140212
  Receipt Date: 20140303
  Transmission Date: 20141002
  Serious: No
  Sender: FDA-Public Use
  Company Number: US-GILEAD-2014-0094090

PATIENT
  Sex: Female
  Weight: 61.22 kg

DRUGS (2)
  1. EFAVIRENZ/EMTRICITABINE/TENOFOVIR DISOPROXIL FUMARATE [Suspect]
     Indication: ACQUIRED IMMUNODEFICIENCY SYNDROME
     Dosage: 1100 MG, UNK
     Route: 065
  2. SYNTHROID [Concomitant]
     Dosage: UNK

REACTIONS (1)
  - Intentional drug misuse [Recovered/Resolved]
